FAERS Safety Report 19999471 (Version 1)
Quarter: 2021Q4

REPORT INFORMATION
  Report Type: Other
  Country: CA (occurrence: CA)
  Receive Date: 20211027
  Receipt Date: 20211027
  Transmission Date: 20220303
  Serious: Yes (Hospitalization)
  Sender: FDA-Public Use
  Company Number: CA-CELLTRION INC.-2021CA014343

PATIENT

DRUGS (10)
  1. RITUXIMAB [Suspect]
     Active Substance: RITUXIMAB
     Indication: Rheumatoid arthritis
     Dosage: 1000.0 MILLIGRAM
     Route: 042
  2. KADCYLA [Suspect]
     Active Substance: ADO-TRASTUZUMAB EMTANSINE
     Indication: Product used for unknown indication
     Route: 065
  3. BENADRYL [Concomitant]
     Active Substance: DIPHENHYDRAMINE HYDROCHLORIDE
     Route: 048
  4. HYDROMORPHONE [Concomitant]
     Active Substance: HYDROMORPHONE
  5. IMODIUM [Concomitant]
     Active Substance: LOPERAMIDE HYDROCHLORIDE
  6. METHYLPREDNISOLONE [Concomitant]
     Active Substance: METHYLPREDNISOLONE
     Route: 042
  7. PANTOPRAZOLE SODIUM [Concomitant]
     Active Substance: PANTOPRAZOLE SODIUM
  8. REAL ALOE ALOE VERA JUICE [Concomitant]
  9. SYNTHROID [Concomitant]
     Active Substance: LEVOTHYROXINE SODIUM
  10. TYLENOL [Concomitant]
     Active Substance: ACETAMINOPHEN
     Route: 048

REACTIONS (2)
  - Femur fracture [Unknown]
  - Hip fracture [Unknown]
